FAERS Safety Report 4972098-3 (Version None)
Quarter: 2006Q2

REPORT INFORMATION
  Report Type: 
  Country: None (occurrence: None)
  Receive Date: 20060412
  Receipt Date: 20060412
  Transmission Date: 20061013
  Serious: Yes (Other)
  Sender: FDA-Public Use
  Company Number: None

PATIENT
  Age: 21 Year
  Sex: Female

DRUGS (1)
  1. MAGNESIUM SULFATE IN WATER 40 MG/ML-40 HOSPIRA [Suspect]
     Indication: PREMATURE LABOUR
     Dosage: SEE SUMMARY FOR INFUSION RATE IV DRIP
     Route: 041
     Dates: start: 20060312, end: 20060313

REACTIONS (3)
  - DRUG EXPOSURE DURING PREGNANCY [None]
  - MEDICATION ERROR [None]
  - PHARMACEUTICAL PRODUCT COMPLAINT [None]
